FAERS Safety Report 7653973-8 (Version None)
Quarter: 2011Q3

REPORT INFORMATION
  Report Type: 
  Country: None (occurrence: None)
  Receive Date: 20110803
  Receipt Date: 20110728
  Transmission Date: 20111222
  Serious: Yes (Other)
  Sender: FDA-Public Use
  Company Number: FR-PFIZER INC-2011139777

PATIENT
  Age: 87 Year
  Sex: Female

DRUGS (1)
  1. ALPRAZOLAM [Suspect]
     Dosage: 0.25 MG, 3X/DAY

REACTIONS (5)
  - HALLUCINATIONS, MIXED [None]
  - NIGHTMARE [None]
  - SKIN PLAQUE [None]
  - DELUSION [None]
  - AGGRESSION [None]
